FAERS Safety Report 7425377-4 (Version None)
Quarter: 2011Q2

REPORT INFORMATION
  Report Type: 
  Country: None (occurrence: None)
  Receive Date: 20110420
  Receipt Date: 20110411
  Transmission Date: 20111010
  Serious: Yes (Other)
  Sender: FDA-Public Use
  Company Number: US-ELI_LILLY_AND_COMPANY-US201104003885

PATIENT
  Sex: Male

DRUGS (6)
  1. STRATTERA [Suspect]
     Indication: ATTENTION DEFICIT/HYPERACTIVITY DISORDER
     Dosage: 10 MG, UNK
     Dates: start: 20110101
  2. STRATTERA [Suspect]
     Dosage: 18 MG, QD
  3. STRATTERA [Suspect]
     Dosage: 60 MG, QD
  4. TESTOSTERONE [Concomitant]
     Route: 061
  5. STRATTERA [Suspect]
     Dosage: 25 MG, QD
  6. STRATTERA [Suspect]
     Dosage: 40 MG, QD

REACTIONS (4)
  - GLOMERULAR FILTRATION RATE DECREASED [None]
  - URINARY RETENTION [None]
  - URINARY HESITATION [None]
  - ERECTILE DYSFUNCTION [None]
